FAERS Safety Report 9438022 (Version 1)
Quarter: 2013Q3

REPORT INFORMATION
  Report Type: Spontaneous
  Country: US (occurrence: US)
  Receive Date: 20130802
  Receipt Date: 20130802
  Transmission Date: 20140515
  Serious: No
  Sender: FDA-Public Use
  Company Number: US-BRISTOL-MYERS SQUIBB COMPANY-16714388

PATIENT
  Age: 68 Year
  Sex: Male

DRUGS (2)
  1. COUMADIN [Suspect]
     Dosage: START: 10 OR 15 YEARS.
  2. UNSPECIFIED INGREDIENTS [Suspect]

REACTIONS (2)
  - International normalised ratio decreased [Unknown]
  - Food interaction [Unknown]
